FAERS Safety Report 5217430-0 (Version None)
Quarter: 2007Q1

REPORT INFORMATION
  Report Type: 
  Country: None (occurrence: None)
  Receive Date: 20070124
  Receipt Date: 20060315
  Transmission Date: 20070707
  Serious: Yes (Life-Threatening, Hospitalization, Other)
  Sender: FDA-Public Use
  Company Number: US-GLAXOSMITHKLINE-A0594844A

PATIENT
  Age: 42 Year
  Sex: Female
  Weight: 84.5 kg

DRUGS (3)
  1. PAXIL CR [Suspect]
     Indication: MAJOR DEPRESSION
     Dosage: 12.5MG PER DAY
     Dates: start: 20051206, end: 20060220
  2. ULTRAM [Concomitant]
     Indication: PAIN
     Route: 048
     Dates: start: 20051229
  3. PERCOCET [Concomitant]
     Indication: PAIN
     Route: 048

REACTIONS (2)
  - CONVULSION [None]
  - SEROTONIN SYNDROME [None]
